FAERS Safety Report 4868573-2 (Version None)
Quarter: 2005Q4

REPORT INFORMATION
  Report Type: 
  Country: None (occurrence: None)
  Receive Date: 20051223
  Receipt Date: 20051214
  Transmission Date: 20060501
  Serious: Yes (Hospitalization, Other)
  Sender: FDA-Public Use
  Company Number: 2005169769

PATIENT
  Age: 46 Year
  Sex: Female

DRUGS (8)
  1. NEURONTIN [Suspect]
     Indication: COMPLEX REGIONAL PAIN SYNDROME
     Dosage: 300 MG (1 D), ORAL
     Route: 048
     Dates: start: 19990101, end: 20050801
  2. NEURONTIN [Suspect]
     Indication: PAIN
     Dosage: 300 MG (1 D), ORAL
     Route: 048
     Dates: start: 19990101, end: 20050801
  3. PAXIL [Concomitant]
  4. APO-BROMAZEPAM (BROMAZEPAM) [Concomitant]
  5. CHLORDIAZEPOXIDE HCL [Concomitant]
  6. CESAMET (NABILONE) [Concomitant]
  7. MORPHINE SULFATE [Concomitant]
  8. MUSCLE RELAXANTS (MUSCLE RELAXANTS) [Concomitant]

REACTIONS (8)
  - ABORTION SPONTANEOUS [None]
  - DRUG ADMINISTRATION ERROR [None]
  - DRUG EXPOSURE DURING PREGNANCY [None]
  - DRUG WITHDRAWAL SYNDROME [None]
  - PAIN [None]
  - PREGNANCY [None]
  - SELF MUTILATION [None]
  - SLEEP TERROR [None]
